FAERS Safety Report 4724553-9 (Version None)
Quarter: 2005Q3

REPORT INFORMATION
  Report Type: 
  Country: None (occurrence: None)
  Receive Date: 20050726
  Receipt Date: 20050720
  Transmission Date: 20060218
  Serious: Yes (Hospitalization)
  Sender: FDA-Public Use
  Company Number: NL-BRISTOL-MYERS SQUIBB COMPANY-13044862

PATIENT
  Age: 76 Year
  Sex: Female

DRUGS (3)
  1. NEWACE-20 TABS [Suspect]
     Dates: start: 20030401
  2. TAUREDON [Interacting]
     Route: 030
     Dates: start: 20000101, end: 20050101
  3. GOLD [Concomitant]
     Indication: PSORIATIC ARTHROPATHY
     Dates: start: 19990101

REACTIONS (7)
  - CIRCULATORY COLLAPSE [None]
  - DRUG INTERACTION [None]
  - FLUSHING [None]
  - HYPOTENSION [None]
  - LOSS OF CONSCIOUSNESS [None]
  - NITRITOID CRISIS [None]
  - TACHYCARDIA [None]
